FAERS Safety Report 14559888 (Version 1)
Quarter: 2018Q1

REPORT INFORMATION
  Report Type: Spontaneous
  Country: US (occurrence: US)
  Receive Date: 20180220
  Receipt Date: 20180220
  Transmission Date: 20180509
  Serious: Yes (Life-Threatening, Hospitalization, Other)
  Sender: FDA-Public Use
  Company Number: None

PATIENT
  Age: 81 Year
  Sex: Male
  Weight: 54.5 kg

DRUGS (2)
  1. PEMBROLIZUMAB 200MG [Suspect]
     Active Substance: PEMBROLIZUMAB
     Indication: ACUTE MYELOID LEUKAEMIA
     Route: 042
     Dates: start: 20170612, end: 20171206
  2. AZACITIDINE 75MG/M2 [Suspect]
     Active Substance: AZACITIDINE
     Indication: ACUTE MYELOID LEUKAEMIA
     Dosage: DOSE - 75MG/M2?FREQUENCY - ONCE DAILY FOR 7 DAYS
     Route: 042
     Dates: start: 20170605, end: 20171205

REACTIONS (3)
  - Condition aggravated [None]
  - Pneumonitis [None]
  - Pneumonia fungal [None]

NARRATIVE: CASE EVENT DATE: 20180219
